FAERS Safety Report 7543597-5 (Version None)
Quarter: 2011Q2

REPORT INFORMATION
  Report Type: 
  Country: None (occurrence: None)
  Receive Date: 20110613
  Receipt Date: 20021210
  Transmission Date: 20111010
  Serious: Yes (Hospitalization)
  Sender: FDA-Public Use
  Company Number: PHBS2001JP13069

PATIENT
  Sex: Female
  Weight: 48 kg

DRUGS (4)
  1. LOCHOLEST [Suspect]
     Indication: HYPERCHOLESTEROLAEMIA
     Dosage: 20 MG/DAY
     Route: 048
     Dates: start: 20000803, end: 20020830
  2. AMLODIPINE [Suspect]
     Indication: HYPERTENSION
     Dosage: 5 MG/DAY
     Route: 048
     Dates: start: 20000209
  3. TANATRIL ^TANABE^ [Suspect]
     Indication: HYPERTENSION
     Dosage: 5 MG/DAY
     Route: 048
     Dates: start: 20000209
  4. LOCHOLEST [Suspect]
     Dosage: 20 MG/DAY
     Route: 048
     Dates: start: 20020712, end: 20020912

REACTIONS (1)
  - LUNG NEOPLASM MALIGNANT [None]
